FAERS Safety Report 14518997 (Version 1)
Quarter: 2018Q1

REPORT INFORMATION
  Report Type: Spontaneous
  Country: US (occurrence: US)
  Receive Date: 20180209
  Receipt Date: 20180209
  Transmission Date: 20180509
  Serious: Yes (Hospitalization, Congenital Anomaly)
  Sender: FDA-Public Use
  Company Number: None

PATIENT
  Sex: Female

DRUGS (1)
  1. EFFEXOR [Suspect]
     Active Substance: VENLAFAXINE HYDROCHLORIDE
     Indication: DEPRESSION
     Dates: start: 20060101, end: 20100119

REACTIONS (3)
  - Transposition of the great vessels [None]
  - Heart disease congenital [None]
  - Maternal drugs affecting foetus [None]

NARRATIVE: CASE EVENT DATE: 20100119
